FAERS Safety Report 15138264 (Version 1)
Quarter: 2018Q3

REPORT INFORMATION
  Report Type: Spontaneous
  Country: US (occurrence: US)
  Receive Date: 20180713
  Receipt Date: 20180713
  Transmission Date: 20181010
  Serious: No
  Sender: FDA-Public Use
  Company Number: US-TEVA-2018-US-923751

PATIENT
  Sex: Female

DRUGS (1)
  1. MICONAZOLE. [Suspect]
     Active Substance: MICONAZOLE
     Indication: VAGINAL INFECTION
     Route: 067
     Dates: start: 20180705

REACTIONS (4)
  - Headache [Unknown]
  - Hyperhidrosis [Unknown]
  - Tremor [Unknown]
  - Burning sensation [Unknown]

NARRATIVE: CASE EVENT DATE: 20180705
